FAERS Safety Report 5977181-1 (Version None)
Quarter: 2008Q4

REPORT INFORMATION
  Report Type: 
  Country: None (occurrence: None)
  Receive Date: 20081201
  Receipt Date: 20081201
  Transmission Date: 20090506
  Serious: Yes (Hospitalization)
  Sender: FDA-Public Use
  Company Number: None

PATIENT
  Age: 31 Year
  Sex: Female
  Weight: 77.1115 kg

DRUGS (1)
  1. MORPHINE SULFATE [Suspect]
     Indication: PROCEDURAL PAIN
     Dosage: 30 MG 1/2-1 TABLET EVERY PO
     Route: 048
     Dates: start: 20080926, end: 20080927

REACTIONS (10)
  - ABASIA [None]
  - CRYING [None]
  - DIARRHOEA [None]
  - HYPERSENSITIVITY [None]
  - OEDEMA PERIPHERAL [None]
  - PRODUCT QUALITY ISSUE [None]
  - RETCHING [None]
  - SOMNOLENCE [None]
  - SWELLING FACE [None]
  - VOMITING [None]
